FAERS Safety Report 9676892 (Version 2)
Quarter: 2013Q4

REPORT INFORMATION
  Report Type: Spontaneous
  Country: CA (occurrence: CA)
  Receive Date: 20131107
  Receipt Date: 20131112
  Transmission Date: 20140711
  Serious: Yes (Hospitalization)
  Sender: FDA-Public Use
  Company Number: CA-AMGEN-CANSP2013078369

PATIENT
  Age: 73 Year
  Sex: Male

DRUGS (11)
  1. ENBREL [Suspect]
     Indication: RHEUMATOID ARTHRITIS
     Dosage: 50 MG, UNK
     Route: 065
     Dates: start: 20061209, end: 2011
  2. LYRICA [Concomitant]
     Dosage: 25 MG IN THE MORNING, 50 MG IN THE AFTERNOON AND 75 MG IN THE EVENING
  3. APO-NORTRIPTYLINE [Concomitant]
     Dosage: UNK
  4. VITAMIN D                          /00107901/ [Concomitant]
     Dosage: 1000 UNIT, UNK
  5. PANTOPRAZOLE [Concomitant]
     Dosage: 40 MG, UNK
  6. PMS ATORVASTATIN [Concomitant]
     Dosage: 10 MG, UNK
  7. SENNOSIDE                          /00571901/ [Concomitant]
     Dosage: 8.6 MG, UNK
  8. SULFASALAZINE [Concomitant]
     Dosage: UNK
  9. SALAZOPYRIN [Concomitant]
     Dosage: 100 MG, TID
  10. CYCLOBENZAPRINE [Concomitant]
     Dosage: 10 MG, QD
  11. PREDNISONE [Concomitant]
     Dosage: 5 MG, UNK

REACTIONS (2)
  - Lymphoma [Recovered/Resolved]
  - Micturition disorder [Unknown]
